FAERS Safety Report 24022210 (Version 1)
Quarter: 2024Q2

REPORT INFORMATION
  Report Type: Spontaneous
  Country: AT (occurrence: AT)
  Receive Date: 20240627
  Receipt Date: 20240627
  Transmission Date: 20240715
  Serious: No
  Sender: FDA-Public Use
  Company Number: AT-ROCHE-3548058

PATIENT
  Age: 66 Year
  Sex: Female

DRUGS (3)
  1. VABYSMO [Suspect]
     Active Substance: FARICIMAB\FARICIMAB-SVOA
     Indication: Choroidal neovascularisation
     Dosage: 6Q 8 WEEKS? FREQUENCY TEXT:6Q 8 WEEKS
     Route: 065
     Dates: start: 20230530, end: 20240313
  2. VABYSMO [Suspect]
     Active Substance: FARICIMAB\FARICIMAB-SVOA
     Indication: Central serous chorioretinopathy
  3. EUTHYROX [Concomitant]
     Active Substance: LEVOTHYROXINE SODIUM
     Indication: Hypothyroidism
     Route: 048

REACTIONS (2)
  - Vitritis [Recovered/Resolved]
  - Iridocyclitis [Recovered/Resolved]

NARRATIVE: CASE EVENT DATE: 20240314
